FAERS Safety Report 8514822-9 (Version None)
Quarter: 2012Q3

REPORT INFORMATION
  Report Type: 
  Country: None (occurrence: None)
  Receive Date: 20120717
  Receipt Date: 20120717
  Transmission Date: 20120928
  Serious: Yes (Other)
  Sender: FDA-Public Use
  Company Number: US-ROCHE-1068259

PATIENT
  Sex: Male

DRUGS (5)
  1. PEGASYS [Suspect]
     Indication: HEPATITIS C
     Dosage: SYRINGE
     Dates: start: 20120220
  2. COPEGUS [Suspect]
     Indication: HEPATITIS C
     Dates: start: 20120220
  3. PEGASYS [Suspect]
     Dates: start: 20120223
  4. COPEGUS [Suspect]
     Dates: start: 20120220
  5. BOCEPREVIR [Suspect]
     Indication: HEPATITIS C

REACTIONS (30)
  - TYPE 2 DIABETES MELLITUS [None]
  - GASTRIC ULCER [None]
  - FAMILY STRESS [None]
  - EMOTIONAL DISTRESS [None]
  - IRRITABILITY [None]
  - WEIGHT DECREASED [None]
  - GASTRITIS [None]
  - FAECES DISCOLOURED [None]
  - ULCER HAEMORRHAGE [None]
  - OROPHARYNGEAL PAIN [None]
  - DUODENAL ULCER [None]
  - VIROLOGIC FAILURE [None]
  - COSTOCHONDRITIS [None]
  - INSOMNIA [None]
  - PYREXIA [None]
  - ABDOMINAL PAIN [None]
  - PAIN [None]
  - DEPRESSION [None]
  - FRUSTRATION [None]
  - MOOD SWINGS [None]
  - OESOPHAGEAL ULCER [None]
  - ANXIETY [None]
  - TEARFULNESS [None]
  - AGITATION [None]
  - TINNITUS [None]
  - APHAGIA [None]
  - ARTHRALGIA [None]
  - THROAT IRRITATION [None]
  - SELF-INJURIOUS IDEATION [None]
  - ANGER [None]
